FAERS Safety Report 16381362 (Version 1)
Quarter: 2019Q2

REPORT INFORMATION
  Report Type: Spontaneous
  Country: FR (occurrence: FR)
  Receive Date: 20190603
  Receipt Date: 20190603
  Transmission Date: 20190711
  Serious: Yes (Other)
  Sender: FDA-Public Use
  Company Number: FR-ASTRAZENECA-2019SE80392

PATIENT
  Sex: Male

DRUGS (1)
  1. BRILIQUE [Suspect]
     Active Substance: TICAGRELOR
     Dosage: UNKNOWN
     Route: 048

REACTIONS (1)
  - Sleep apnoea syndrome [Unknown]

NARRATIVE: CASE EVENT DATE: 20190528
